FAERS Safety Report 6130141-2 (Version None)
Quarter: 2009Q1

REPORT INFORMATION
  Report Type: 
  Country: None (occurrence: None)
  Receive Date: 20090324
  Receipt Date: 20090311
  Transmission Date: 20090719
  Serious: Yes (Hospitalization)
  Sender: FDA-Public Use
  Company Number: US-AMGEN-US335510

PATIENT
  Age: 41 Year
  Sex: Female
  Weight: 181.6 kg

DRUGS (15)
  1. NPLATE [Suspect]
     Indication: IDIOPATHIC THROMBOCYTOPENIC PURPURA
     Route: 058
     Dates: start: 20090203, end: 20090219
  2. VITAMINS NOS [Concomitant]
     Route: 048
  3. BENADRYL [Concomitant]
  4. DEMADEX [Concomitant]
     Route: 048
  5. COUMADIN [Concomitant]
     Route: 048
  6. PREVACID [Concomitant]
  7. DECADRON [Concomitant]
  8. ATIVAN [Concomitant]
     Route: 048
  9. OXYCONTIN [Concomitant]
  10. FOSAMAX [Concomitant]
     Route: 048
  11. KEFLEX [Concomitant]
  12. POTASSIUM CHLORIDE [Concomitant]
  13. K-DUR [Concomitant]
  14. AVELOX [Concomitant]
  15. LASIX [Concomitant]
     Route: 048

REACTIONS (2)
  - CELLULITIS [None]
  - OEDEMA PERIPHERAL [None]
